FAERS Safety Report 15532615 (Version 1)
Quarter: 2018Q4

REPORT INFORMATION
  Report Type: Spontaneous
  Country: JP (occurrence: JP)
  Receive Date: 20181019
  Receipt Date: 20181019
  Transmission Date: 20190205
  Serious: Yes (Death, Other)
  Sender: FDA-Public Use
  Company Number: JP-PFIZER INC-2018421277

PATIENT
  Age: 9 Decade
  Sex: Female

DRUGS (1)
  1. RHEUMATREX [Suspect]
     Active Substance: METHOTREXATE SODIUM

REACTIONS (2)
  - Drowning [Fatal]
  - Pneumonia [Unknown]

NARRATIVE: CASE EVENT DATE: 2018
